FAERS Safety Report 6230816-0 (Version None)
Quarter: 2009Q2

REPORT INFORMATION
  Report Type: 
  Country: None (occurrence: None)
  Receive Date: 20090616
  Receipt Date: 20090609
  Transmission Date: 20091009
  Serious: Yes (Other)
  Sender: FDA-Public Use
  Company Number: US-ASTRAZENECA-2009UW08145

PATIENT
  Age: 68 Year
  Sex: Female
  Weight: 71.2 kg

DRUGS (3)
  1. ARIMIDEX [Suspect]
     Indication: BREAST CANCER FEMALE
     Route: 048
     Dates: start: 20090212
  2. ASPIRIN [Concomitant]
     Dosage: DAILY
     Route: 048
  3. DIOVAN [Concomitant]
     Dosage: DAILY
     Route: 048

REACTIONS (7)
  - ANGINA PECTORIS [None]
  - CHEST PAIN [None]
  - DYSPHAGIA [None]
  - DYSPNOEA [None]
  - FATIGUE [None]
  - FLUID RETENTION [None]
  - VASCULITIS [None]
